FAERS Safety Report 20658716 (Version 1)
Quarter: 2022Q1

REPORT INFORMATION
  Report Type: Spontaneous
  Country: US (occurrence: None)
  Receive Date: 20220331
  Receipt Date: 20220331
  Transmission Date: 20220423
  Serious: No
  Sender: FDA-Public Use
  Company Number: 2022A123589

PATIENT
  Age: 72 Year
  Sex: Male
  Weight: 81.6 kg

DRUGS (5)
  1. EVUSHELD [Suspect]
     Active Substance: CILGAVIMAB\TIXAGEVIMAB
     Indication: Stem cell transplant
     Dosage: UNKNOWN
     Route: 030
     Dates: start: 20220321
  2. IMBRUVICA [Concomitant]
     Active Substance: IBRUTINIB
     Indication: Neoplasm malignant
  3. IMBRUVICA [Concomitant]
     Active Substance: IBRUTINIB
     Indication: Neoplasm malignant
  4. ACYCLOVIR [Concomitant]
     Active Substance: ACYCLOVIR
     Indication: Antiviral treatment
     Dosage: 2 IN THE AM AND 2 IN THE PM,
  5. OMEPRAZOLE [Concomitant]
     Active Substance: OMEPRAZOLE
     Indication: Antacid therapy
     Dosage: 1 CAPSULE DAILY

REACTIONS (5)
  - Dizziness [Recovered/Resolved]
  - Somnolence [Recovered/Resolved]
  - Feeling abnormal [Recovered/Resolved]
  - Loss of personal independence in daily activities [Recovered/Resolved]
  - Incorrect dose administered [Unknown]

NARRATIVE: CASE EVENT DATE: 20220321
